FAERS Safety Report 18368247 (Version 1)
Quarter: 2020Q4

REPORT INFORMATION
  Report Type: Spontaneous
  Country: US (occurrence: US)
  Receive Date: 20201009
  Receipt Date: 20201009
  Transmission Date: 20210114
  Serious: No
  Sender: FDA-Public Use
  Company Number: US-ASTRAZENECA-2020SF17808

PATIENT
  Sex: Male

DRUGS (1)
  1. BRILINTA [Suspect]
     Active Substance: TICAGRELOR
     Indication: CARDIAC OPERATION
     Route: 048

REACTIONS (4)
  - Contusion [Recovered/Resolved]
  - Haemorrhage [Recovered/Resolved]
  - Skin laceration [Unknown]
  - Dysphagia [Recovered/Resolved]
